FAERS Safety Report 23162355 (Version 1)
Quarter: 2023Q4

REPORT INFORMATION
  Report Type: Report from Study
  Country: US (occurrence: US)
  Receive Date: 20231109
  Receipt Date: 20231109
  Transmission Date: 20240110
  Serious: No
  Sender: FDA-Public Use
  Company Number: US-002147023-NVSC2023US238747

PATIENT
  Sex: Female
  Weight: 76.66 kg

DRUGS (1)
  1. TRIAMCINOLONE [Suspect]
     Active Substance: TRIAMCINOLONE
     Indication: Psoriasis
     Dosage: UNK
     Route: 065
     Dates: start: 20200331

REACTIONS (5)
  - Dermatitis [Unknown]
  - Psoriasis [Unknown]
  - Skin mass [Unknown]
  - Skin exfoliation [Unknown]
  - Drug ineffective [Unknown]
